FAERS Safety Report 5599555-3 (Version None)
Quarter: 2008Q1

REPORT INFORMATION
  Report Type: 
  Country: None (occurrence: None)
  Receive Date: 20080123
  Receipt Date: 20080114
  Transmission Date: 20080703
  Serious: Yes (Other)
  Sender: FDA-Public Use
  Company Number: PHBS2008AU00889

PATIENT
  Age: 16 Year
  Sex: Female

DRUGS (1)
  1. PAMIDRONATE DISODIUM [Suspect]
     Indication: OSTEOMYELITIS
     Dosage: UNK, UNK
     Route: 048

REACTIONS (1)
  - TENOSYNOVITIS [None]
